FAERS Safety Report 7871457-9 (Version None)
Quarter: 2011Q4

REPORT INFORMATION
  Report Type: 
  Country: None (occurrence: None)
  Receive Date: 20111029
  Receipt Date: 20110302
  Transmission Date: 20120403
  Serious: No
  Sender: FDA-Public Use
  Company Number: US-AMGEN-USASP2011011801

PATIENT
  Sex: Female

DRUGS (5)
  1. ENBREL [Suspect]
     Indication: JUVENILE ARTHRITIS
     Dosage: 0.7 ML, Q2WK
     Dates: start: 20030101
  2. FOLIC ACID [Concomitant]
     Dates: end: 20100101
  3. FOLIC ACID [Concomitant]
     Dates: end: 20100101
  4. METHOTREXATE [Concomitant]
     Dates: end: 20100101
  5. METHOTREXATE [Concomitant]
     Dates: end: 20100101

REACTIONS (3)
  - INJECTION SITE SWELLING [None]
  - INJECTION SITE PAIN [None]
  - INJECTION SITE REACTION [None]
